FAERS Safety Report 9732281 (Version 1)
Quarter: 2013Q4

REPORT INFORMATION
  Report Type: Spontaneous
  Country: US (occurrence: US)
  Receive Date: 20131205
  Receipt Date: 20131205
  Transmission Date: 20140711
  Serious: No
  Sender: FDA-Public Use
  Company Number: US-BAYER-2013-145568

PATIENT
  Age: 69 Year
  Sex: Male
  Weight: 81.63 kg

DRUGS (1)
  1. LEVITRA [Suspect]
     Indication: ERECTILE DYSFUNCTION
     Dosage: 20 MG, UNK

REACTIONS (1)
  - Drug ineffective [Unknown]
